FAERS Safety Report 20600421 (Version 1)
Quarter: 2022Q1

REPORT INFORMATION
  Report Type: Report from Study
  Country: MX (occurrence: MX)
  Receive Date: 20220316
  Receipt Date: 20220316
  Transmission Date: 20220424
  Serious: Yes (Hospitalization)
  Sender: FDA-Public Use
  Company Number: MX-NOVARTISPH-NVSC2022MX059596

PATIENT
  Sex: Male
  Weight: 74 kg

DRUGS (1)
  1. TASIGNA [Suspect]
     Active Substance: NILOTINIB
     Indication: Chronic myeloid leukaemia
     Dosage: 400 MG, Q12H
     Route: 048
     Dates: start: 2012, end: 20220310

REACTIONS (5)
  - Cerebral infarction [Not Recovered/Not Resolved]
  - Skin ulcer [Not Recovered/Not Resolved]
  - Poor peripheral circulation [Not Recovered/Not Resolved]
  - Limb discomfort [Not Recovered/Not Resolved]
  - Memory impairment [Not Recovered/Not Resolved]
